FAERS Safety Report 19093400 (Version 2)
Quarter: 2021Q2

REPORT INFORMATION
  Report Type: Spontaneous
  Country: US (occurrence: US)
  Receive Date: 20210405
  Receipt Date: 20210413
  Transmission Date: 20210717
  Serious: No
  Sender: FDA-Public Use
  Company Number: US-SA-2021SA111817

PATIENT
  Age: 83 Year
  Sex: Male

DRUGS (1)
  1. DUPIXENT [Suspect]
     Active Substance: DUPILUMAB
     Indication: DERMATITIS
     Dosage: 300 MG, QOW
     Route: 058
     Dates: start: 202103

REACTIONS (9)
  - Infection [Unknown]
  - Cough [Unknown]
  - Product use in unapproved indication [Unknown]
  - Neck pain [Unknown]
  - Oxygen saturation decreased [Unknown]
  - Peripheral swelling [Unknown]
  - Muscular weakness [Unknown]
  - Arthralgia [Unknown]
  - Bronchitis [Unknown]

NARRATIVE: CASE EVENT DATE: 2021
